FAERS Safety Report 13661118 (Version 1)
Quarter: 2017Q2

REPORT INFORMATION
  Report Type: Spontaneous
  Country: US (occurrence: US)
  Receive Date: 20170616
  Receipt Date: 20170616
  Transmission Date: 20170830
  Serious: Yes (Other)
  Sender: FDA-Public Use
  Company Number: PHHY2017US086701

PATIENT
  Age: 53 Year
  Sex: Female

DRUGS (1)
  1. SECUKINUMAB [Suspect]
     Active Substance: SECUKINUMAB
     Indication: PSORIASIS
     Dosage: 300 MG, UNK (AT WEEKS 0, 1, 2, 3, AND 4)
     Route: 065

REACTIONS (5)
  - Psoriasis [Recovering/Resolving]
  - Rash erythematous [Recovering/Resolving]
  - Skin exfoliation [Recovering/Resolving]
  - Papule [Recovering/Resolving]
  - Skin plaque [Recovering/Resolving]
